FAERS Safety Report 11667425 (Version 3)
Quarter: 2016Q1

REPORT INFORMATION
  Report Type: Spontaneous
  Country: US (occurrence: US)
  Receive Date: 20151027
  Receipt Date: 20160212
  Transmission Date: 20160525
  Serious: No
  Sender: FDA-Public Use
  Company Number: US-VERTEX PHARMACEUTICALS-2015-004747

PATIENT
  Age: 16 Year
  Sex: Male

DRUGS (13)
  1. CYPROHEPTADIN [Concomitant]
  2. LANSOPRAZOLE. [Concomitant]
     Active Substance: LANSOPRAZOLE
  3. LEVOFLOXACIN. [Concomitant]
     Active Substance: LEVOFLOXACIN
  4. HYPERSAL [Concomitant]
  5. AQUADEKS [Concomitant]
  6. PREDNISONE. [Concomitant]
     Active Substance: PREDNISONE
  7. MUCINEX [Concomitant]
     Active Substance: GUAIFENESIN
  8. LORATADINE. [Concomitant]
     Active Substance: LORATADINE
  9. ORKAMBI [Suspect]
     Active Substance: IVACAFTOR\LUMACAFTOR
     Indication: CYSTIC FIBROSIS
     Dosage: 400MG-250MG, BID
     Route: 048
     Dates: start: 20150831
  10. CREON [Concomitant]
     Active Substance: PANCRELIPASE AMYLASE\PANCRELIPASE LIPASE\PANCRELIPASE PROTEASE
  11. PULMOZYME [Concomitant]
     Active Substance: DORNASE ALFA
  12. PROAIR HFA [Concomitant]
     Active Substance: ALBUTEROL SULFATE
  13. POLYETHYLENE GLYCOL [Concomitant]
     Active Substance: POLYETHYLENE GLYCOLS

REACTIONS (5)
  - Chest discomfort [Unknown]
  - Chest pain [Unknown]
  - Constipation [Recovered/Resolved]
  - Muscle spasms [Unknown]
  - Decreased appetite [Unknown]

NARRATIVE: CASE EVENT DATE: 201510
